FAERS Safety Report 4827563-6 (Version None)
Quarter: 2005Q4

REPORT INFORMATION
  Report Type: 
  Country: None (occurrence: None)
  Receive Date: 20051114
  Receipt Date: 20051103
  Transmission Date: 20060501
  Serious: Yes (Other)
  Sender: FDA-Public Use
  Company Number: FR-NOVOPROD-248317

PATIENT
  Age: 60 Year
  Sex: Male

DRUGS (1)
  1. NOVONORM [Suspect]
     Indication: DIABETES MELLITUS NON-INSULIN-DEPENDENT
     Dosage: .5 MG, QD
     Route: 048

REACTIONS (1)
  - AMAUROSIS FUGAX [None]
